FAERS Safety Report 15975595 (Version 1)
Quarter: 2019Q1

REPORT INFORMATION
  Report Type: Report from Study
  Country: US (occurrence: US)
  Receive Date: 20190218
  Receipt Date: 20190218
  Transmission Date: 20190418
  Serious: Yes (Hospitalization, Other)
  Sender: FDA-Public Use
  Company Number: US-BIOGEN-2019BI00694771

PATIENT
  Sex: Male

DRUGS (1)
  1. TYSABRI [Suspect]
     Active Substance: NATALIZUMAB
     Indication: MULTIPLE SCLEROSIS
     Route: 065
     Dates: start: 20130411

REACTIONS (5)
  - Osteonecrosis [Unknown]
  - Intervertebral disc protrusion [Unknown]
  - Drug hypersensitivity [Unknown]
  - Gait inability [Unknown]
  - Degenerative bone disease [Unknown]
